FAERS Safety Report 11402229 (Version 1)
Quarter: 2015Q3

REPORT INFORMATION
  Report Type: Spontaneous
  Country: US (occurrence: US)
  Receive Date: 20150821
  Receipt Date: 20150821
  Transmission Date: 20151125
  Serious: No
  Sender: FDA-Public Use
  Company Number: US-ROCHE-1368429

PATIENT
  Sex: Female

DRUGS (2)
  1. RIBASPHERE [Concomitant]
     Active Substance: RIBAVIRIN
     Indication: CHRONIC HEPATITIS C
     Dosage: 400 MG EVERY ANTE MERIDIEM AND 600 MG POST ANTE MERIDIEM
     Route: 048
  2. PEGASYS [Suspect]
     Active Substance: PEGINTERFERON ALFA-2A
     Indication: CHRONIC HEPATITIS C
     Route: 058

REACTIONS (1)
  - Pruritus [Not Recovered/Not Resolved]
